FAERS Safety Report 8839172 (Version 3)
Quarter: 2013Q2

REPORT INFORMATION
  Report Type: Spontaneous
  Country: US (occurrence: US)
  Receive Date: 20121015
  Receipt Date: 20130426
  Transmission Date: 20140414
  Serious: No
  Sender: FDA-Public Use
  Company Number: US-009507513-1210USA000045

PATIENT
  Age: 70 Year
  Sex: Male

DRUGS (1)
  1. INVANZ [Suspect]
     Indication: INFECTION
     Dosage: UNK
     Dates: start: 20120918, end: 201209

REACTIONS (2)
  - Fall [Recovering/Resolving]
  - Dyspnoea [Recovering/Resolving]
